FAERS Safety Report 8140480-1 (Version None)
Quarter: 2012Q1

REPORT INFORMATION
  Report Type: 
  Country: None (occurrence: None)
  Receive Date: 20120216
  Receipt Date: 20120210
  Transmission Date: 20120608
  Serious: Yes (Hospitalization)
  Sender: FDA-Public Use
  Company Number: FR-PFIZER INC-2012036444

PATIENT
  Age: 95 Year
  Sex: Male

DRUGS (7)
  1. CELEBREX [Suspect]
     Dosage: 100 MG, 1X/DAY
     Route: 048
     Dates: end: 20120105
  2. MODOPAR [Suspect]
     Dosage: 100MG/25MG  3X/DAY
     Route: 048
     Dates: end: 20120105
  3. MODOPAR [Suspect]
     Dosage: 1 DF, 3X/DAY
     Dates: start: 20120106
  4. DEXERYL ^PASCUAL^ [Concomitant]
  5. ACETYLCYSTEINE [Suspect]
     Dosage: UNK
     Route: 055
     Dates: end: 20120105
  6. NIFLUGEL [Concomitant]
  7. GAVISCON [Concomitant]

REACTIONS (3)
  - DISORIENTATION [None]
  - CONFUSIONAL STATE [None]
  - HALLUCINATION, VISUAL [None]
